FAERS Safety Report 7676702-0 (Version None)
Quarter: 2011Q3

REPORT INFORMATION
  Report Type: 
  Country: None (occurrence: None)
  Receive Date: 20110811
  Receipt Date: 20110801
  Transmission Date: 20111222
  Serious: Yes (Other)
  Sender: FDA-Public Use
  Company Number: BR-JNJFOC-20110801471

PATIENT
  Age: 56 Year
  Sex: Female

DRUGS (2)
  1. REMICADE [Suspect]
     Indication: RHEUMATOID ARTHRITIS
     Route: 042
     Dates: start: 20081205
  2. FOLIC ACID [Concomitant]
     Indication: ANTIINFLAMMATORY THERAPY
     Dates: start: 20081205

REACTIONS (1)
  - BENIGN NEOPLASM [None]
